FAERS Safety Report 15188132 (Version 1)
Quarter: 2018Q3

REPORT INFORMATION
  Report Type: Spontaneous
  Country: US (occurrence: US)
  Receive Date: 20180724
  Receipt Date: 20180724
  Transmission Date: 20181010
  Serious: No
  Sender: FDA-Public Use
  Company Number: US-AMGEN-USASP2018098983

PATIENT
  Sex: Male

DRUGS (2)
  1. ENBREL [Suspect]
     Active Substance: ETANERCEPT
     Indication: RHEUMATOID ARTHRITIS
     Dosage: 50 MG, UNK
     Route: 065
     Dates: start: 2010
  2. PREDNISONE. [Suspect]
     Active Substance: PREDNISONE
     Indication: CHONDROCALCINOSIS PYROPHOSPHATE
     Dosage: UNK
     Route: 065
     Dates: start: 2018

REACTIONS (2)
  - Chondrocalcinosis pyrophosphate [Unknown]
  - Cough [Unknown]

NARRATIVE: CASE EVENT DATE: 2017
